FAERS Safety Report 9423845 (Version 1)
Quarter: 2013Q3

REPORT INFORMATION
  Report Type: Spontaneous
  Country: US (occurrence: US)
  Receive Date: 20130729
  Receipt Date: 20130729
  Transmission Date: 20140515
  Serious: No
  Sender: FDA-Public Use
  Company Number: US-B.I. PHARMACEUTICALS,INC./RIDGEFIELD-2013-BI-21685BP

PATIENT
  Age: 64 Year
  Sex: Male
  Weight: 108 kg

DRUGS (9)
  1. COMBIVENT [Suspect]
     Indication: CHRONIC OBSTRUCTIVE PULMONARY DISEASE
     Dosage: 2 PUF
     Route: 055
     Dates: start: 20130715
  2. COMBIVENT [Suspect]
     Indication: CHRONIC OBSTRUCTIVE PULMONARY DISEASE
     Dosage: 1 PUF
     Route: 055
     Dates: start: 2009
  3. PLAVIX [Concomitant]
     Indication: VASCULAR GRAFT
  4. ALBUTEROL NEBULIZER [Concomitant]
     Indication: CHRONIC OBSTRUCTIVE PULMONARY DISEASE
     Route: 055
  5. PREDNISONE [Concomitant]
     Indication: CHRONIC OBSTRUCTIVE PULMONARY DISEASE
  6. ATENOLOL [Concomitant]
     Indication: VASCULAR GRAFT
  7. ALBUTEROL SULFATE [Concomitant]
     Indication: CHRONIC OBSTRUCTIVE PULMONARY DISEASE
  8. GLIPIZIDE [Concomitant]
     Indication: DIABETES MELLITUS
  9. KLONOPIN [Concomitant]
     Indication: ANXIETY

REACTIONS (6)
  - Dyspnoea [Not Recovered/Not Resolved]
  - Dyspnoea [Not Recovered/Not Resolved]
  - Intentional overdose [Not Recovered/Not Resolved]
  - Drug effect decreased [Not Recovered/Not Resolved]
  - Drug prescribing error [Not Recovered/Not Resolved]
  - Product quality issue [Unknown]
